FAERS Safety Report 5472003-X (Version None)
Quarter: 2007Q3

REPORT INFORMATION
  Report Type: 
  Country: None (occurrence: None)
  Receive Date: 20070928
  Receipt Date: 20070920
  Transmission Date: 20080115
  Serious: Yes (Hospitalization)
  Sender: FDA-Public Use
  Company Number: GB-BOEHRINGER INGELHEIM PHARMACEUTICALS, INC.-2007-DE-05651GD

PATIENT
  Age: 58 Year
  Sex: Male

DRUGS (6)
  1. NEVIRAPINE [Suspect]
     Indication: HIV INFECTION
     Route: 048
  2. CLARITHROMYCIN [Suspect]
     Indication: BACTERIAL INFECTION
     Route: 048
  3. CLARITHROMYCIN [Suspect]
     Indication: LOWER RESPIRATORY TRACT INFECTION
  4. ZIDOVUDINE [Suspect]
     Indication: HIV INFECTION
     Route: 048
  5. DIDANOSINE [Suspect]
     Indication: HIV INFECTION
     Route: 048
  6. SIMVASTATIN [Suspect]
     Indication: HYPERCHOLESTEROLAEMIA
     Route: 048

REACTIONS (5)
  - DRUG INTERACTION [None]
  - HOMICIDAL IDEATION [None]
  - PSYCHIATRIC SYMPTOM [None]
  - PSYCHOMOTOR HYPERACTIVITY [None]
  - SUICIDAL IDEATION [None]
